FAERS Safety Report 13420558 (Version 1)
Quarter: 2017Q2

REPORT INFORMATION
  Report Type: Report from Study
  Country: US (occurrence: US)
  Receive Date: 20170408
  Receipt Date: 20170408
  Transmission Date: 20170830
  Serious: No
  Sender: FDA-Public Use
  Company Number: GXBR2017US001130

PATIENT
  Sex: Female
  Weight: 76.64 kg

DRUGS (2)
  1. GLATOPA [Suspect]
     Active Substance: GLATIRAMER ACETATE
     Indication: MULTIPLE SCLEROSIS
     Dosage: 20 MG, QD
     Route: 058
     Dates: start: 20170315
  2. LORAZEPAM. [Concomitant]
     Active Substance: LORAZEPAM
     Indication: ANXIETY
     Dosage: UNK DF, PRN
     Route: 065

REACTIONS (5)
  - Injection site rash [Not Recovered/Not Resolved]
  - Injection site urticaria [Recovering/Resolving]
  - Injection site erythema [Recovering/Resolving]
  - Feeling of body temperature change [Recovered/Resolved]
  - Injection site mass [Not Recovered/Not Resolved]
